FAERS Safety Report 5371475-9 (Version None)
Quarter: 2007Q2

REPORT INFORMATION
  Report Type: 
  Country: None (occurrence: None)
  Receive Date: 20070615
  Receipt Date: 20070405
  Transmission Date: 20071010
  Serious: Yes (Other)
  Sender: FDA-Public Use
  Company Number: 200711429US

PATIENT
  Age: 52 Year
  Sex: Female

DRUGS (11)
  1. LANTUS [Suspect]
     Indication: DIABETES MELLITUS NON-INSULIN-DEPENDENT
  2. LANTUS [Suspect]
     Indication: DIABETES MELLITUS NON-INSULIN-DEPENDENT
     Dosage: 30 U
  3. OPTICLIK GREY [Suspect]
  4. HUMALOG [Concomitant]
  5. PIOGLITAZONE [Concomitant]
  6. CRESTOR [Concomitant]
  7. LEVOTHYROXINE SODIUM (THYROXINE) [Concomitant]
  8. VITAMINS NOS, MINERALS NOS (CENTRUM ) [Concomitant]
  9. FISH OIL [Concomitant]
  10. VITAMINS NOS (VITAMINS NOS) [Concomitant]
  11. ... [Concomitant]

REACTIONS (3)
  - BLOOD GLUCOSE DECREASED [None]
  - BLOOD GLUCOSE INCREASED [None]
  - HYPERGLYCAEMIA [None]
